FAERS Safety Report 6703451-5 (Version None)
Quarter: 2010Q2

REPORT INFORMATION
  Report Type: 
  Country: None (occurrence: None)
  Receive Date: 20100423
  Receipt Date: 20100121
  Transmission Date: 20101027
  Serious: Yes (Hospitalization)
  Sender: FDA-Public Use
  Company Number: SPV1-2010-00136

PATIENT
  Age: 48 Year
  Sex: Female
  Weight: 81.6 kg

DRUGS (4)
  1. VYVANSE [Suspect]
     Indication: ATTENTION DEFICIT/HYPERACTIVITY DISORDER
     Dosage: 30 MG, 1X/DAY:QD, ORAL
     Route: 048
     Dates: start: 20091201
  2. TRILEPTAL [Concomitant]
  3. ZOLOFT [Concomitant]
  4. RISPERDAL [Concomitant]

REACTIONS (6)
  - ALOPECIA [None]
  - EUPHORIC MOOD [None]
  - HYPERTENSION [None]
  - MYALGIA [None]
  - PARAESTHESIA [None]
  - WEIGHT DECREASED [None]
